FAERS Safety Report 9843608 (Version 2)
Quarter: 2014Q1

REPORT INFORMATION
  Report Type: Spontaneous
  Country: US (occurrence: None)
  Receive Date: 20131223
  Receipt Date: 20140228
  Transmission Date: 20141002
  Serious: No
  Sender: FDA-Public Use
  Company Number: 222168LEO

PATIENT
  Sex: Female

DRUGS (1)
  1. PICATO (0.015 %, GEL) [Suspect]
     Indication: PRECANCEROUS CELLS PRESENT
     Dosage: (1 IN 1 D), TOPICAL
     Route: 061
     Dates: start: 20130526, end: 20130528

REACTIONS (3)
  - Application site vesicles [None]
  - Application site pustules [None]
  - Application site pruritus [None]
